FAERS Safety Report 4962327-4 (Version None)
Quarter: 2006Q2

REPORT INFORMATION
  Report Type: 
  Country: None (occurrence: None)
  Receive Date: 20060403
  Receipt Date: 20060403
  Transmission Date: 20061013
  Serious: Yes (Other)
  Sender: FDA-Public Use
  Company Number: None

PATIENT
  Sex: Male
  Weight: 89.8576 kg

DRUGS (4)
  1. LISINOPRIL [Suspect]
     Indication: HYPERTENSION
     Dosage: 1/2 TAB DAILY
     Dates: start: 20050412, end: 20050727
  2. FELODIPINE [Concomitant]
  3. RANITIDINE [Concomitant]
  4. VIAGRA [Concomitant]

REACTIONS (1)
  - SWELLING FACE [None]
